FAERS Safety Report 9191392 (Version 1)
Quarter: 2013Q1

REPORT INFORMATION
  Report Type: Spontaneous
  Country: FR (occurrence: FR)
  Receive Date: 20130326
  Receipt Date: 20130326
  Transmission Date: 20140127
  Serious: Yes (Life-Threatening, Other)
  Sender: FDA-Public Use
  Company Number: FR-PFIZER INC-2013092546

PATIENT
  Age: 7 Week
  Sex: Male
  Weight: 1.93 kg

DRUGS (5)
  1. REVATIO [Suspect]
     Indication: PULMONARY HYPERTENSION
     Dosage: 0.5 ML, 4X/DAY
     Route: 048
     Dates: start: 20091120, end: 20091122
  2. FUMAFER [Concomitant]
  3. UVESTEROL [Concomitant]
  4. NEORECORMON [Concomitant]
     Dosage: 500 IU
     Dates: start: 20091118, end: 20091118
  5. CUROSURF [Concomitant]
     Indication: NEONATAL RESPIRATORY DISTRESS SYNDROME

REACTIONS (9)
  - Necrotising colitis [Recovered/Resolved]
  - Bradycardia [Recovered/Resolved]
  - Oxygen saturation decreased [Not Recovered/Not Resolved]
  - General physical condition abnormal [Unknown]
  - Ventricular septal defect [Unknown]
  - Cerebral cyst [Unknown]
  - Hypospadias [Unknown]
  - Pulmonary hypoplasia [Unknown]
  - Persistent foetal circulation [Unknown]
